FAERS Safety Report 7705645-9 (Version None)
Quarter: 2011Q3

REPORT INFORMATION
  Report Type: 
  Country: None (occurrence: None)
  Receive Date: 20110824
  Receipt Date: 20110812
  Transmission Date: 20111222
  Serious: Yes (Other)
  Sender: FDA-Public Use
  Company Number: US-ELI_LILLY_AND_COMPANY-US201107007949

PATIENT
  Sex: Female

DRUGS (6)
  1. FUROSEMIDE [Concomitant]
  2. FORTEO [Suspect]
     Indication: OSTEOPOROSIS
     Dosage: 20 UG, QD
  3. ASPIRIN [Concomitant]
  4. EVISTA [Suspect]
     Dosage: 60 MG, QD
  5. EVISTA [Suspect]
     Indication: OSTEOPOROSIS
     Dosage: 60 MG, QD
     Dates: start: 20030101
  6. VERAPAMIL [Concomitant]

REACTIONS (7)
  - SPINAL CORD COMPRESSION [None]
  - BACK PAIN [None]
  - MASS [None]
  - EMOTIONAL DISORDER [None]
  - ARTHRITIS [None]
  - BONE CANCER METASTATIC [None]
  - SPINAL HAEMANGIOMA [None]
